FAERS Safety Report 4536265-5 (Version None)
Quarter: 2004Q4

REPORT INFORMATION
  Report Type: 
  Country: None (occurrence: None)
  Receive Date: 20041223
  Receipt Date: 20040524
  Transmission Date: 20050328
  Serious: No
  Sender: FDA-Public Use
  Company Number: US-GLAXOSMITHKLINE-A0511881A

PATIENT
  Age: 10 Year
  Sex: Male

DRUGS (2)
  1. FLONASE [Suspect]
     Indication: SEASONAL ALLERGY
     Route: 045
  2. ZYRTEC [Concomitant]

REACTIONS (1)
  - IRRITABILITY [None]
